FAERS Safety Report 4854446-8 (Version None)
Quarter: 2005Q4

REPORT INFORMATION
  Report Type: 
  Country: None (occurrence: None)
  Receive Date: 20051215
  Receipt Date: 20051208
  Transmission Date: 20060501
  Serious: Yes (Hospitalization)
  Sender: FDA-Public Use
  Company Number: US-BRISTOL-MYERS SQUIBB COMPANY-13208525

PATIENT
  Age: 43 Year
  Sex: Female
  Weight: 106 kg

DRUGS (4)
  1. CETUXIMAB [Suspect]
     Indication: SQUAMOUS CELL CARCINOMA
     Dosage: THERAPY START DATE 10-OCT-05; D/C.
     Dates: start: 20050101, end: 20050101
  2. CARBOPLATIN [Suspect]
     Indication: SQUAMOUS CELL CARCINOMA
     Dosage: THERAPY DATES 10-OCT-2005 TO PRESENT
     Dates: start: 20050101, end: 20050101
  3. PACLITAXEL [Suspect]
     Indication: SQUAMOUS CELL CARCINOMA
     Dosage: THERAPY DATES 10-OCT-2005 TO PRESENT.
     Dates: start: 20050101, end: 20050101
  4. RADIATION THERAPY [Suspect]
     Indication: SQUAMOUS CELL CARCINOMA
     Dosage: THERAPY DATES 10-OCT-2005 TO PRESENT.
     Dates: start: 20050101, end: 20050101

REACTIONS (8)
  - DIPLOPIA [None]
  - GAIT DISTURBANCE [None]
  - LUNG INFILTRATION [None]
  - MALAISE [None]
  - NAUSEA [None]
  - PYREXIA [None]
  - RESPIRATORY DISTRESS [None]
  - VOMITING [None]
